FAERS Safety Report 23848962 (Version 1)
Quarter: 2024Q2

REPORT INFORMATION
  Report Type: Spontaneous
  Country: US (occurrence: US)
  Receive Date: 20240513
  Receipt Date: 20240513
  Transmission Date: 20240716
  Serious: No
  Sender: FDA-Public Use
  Company Number: US-FreseniusKabi-FK202407398

PATIENT
  Age: 80 Year
  Sex: Female

DRUGS (3)
  1. FENTANYL [Suspect]
     Active Substance: FENTANYL\FENTANYL CITRATE
     Indication: Product used for unknown indication
     Dosage: ROUTE OF ADMIN: INTRATHECAL?THERAPY DATES AND DURATION: UNKNOWN
     Route: 037
  2. ZICONOTIDE ACETATE [Suspect]
     Active Substance: ZICONOTIDE ACETATE
     Indication: Pain
     Dosage: ROUTE OF ADMIN: INTRATHECAL INFUSION?ONGOING?THERAPY DURATION: UNKNOWN
     Dates: start: 20240303
  3. ZICONOTIDE ACETATE [Suspect]
     Active Substance: ZICONOTIDE ACETATE
     Indication: Failed back surgery syndrome

REACTIONS (8)
  - Off label use [Unknown]
  - Pruritus [Recovering/Resolving]
  - Sleep disorder [Unknown]
  - Feeling cold [Unknown]
  - Arthralgia [Unknown]
  - Thinking abnormal [Unknown]
  - Limb discomfort [Unknown]
  - Muscular weakness [Unknown]

NARRATIVE: CASE EVENT DATE: 20240303
